FAERS Safety Report 8062268-2 (Version None)
Quarter: 2011Q4

REPORT INFORMATION
  Report Type: 
  Country: None (occurrence: None)
  Receive Date: 20111220
  Receipt Date: 20111019
  Transmission Date: 20120403
  Serious: Yes (Other)
  Sender: FDA-Public Use
  Company Number: 2010005906

PATIENT
  Sex: Female

DRUGS (2)
  1. ACTIQ [Suspect]
     Dosage: BU
     Route: 002
     Dates: start: 20000101, end: 20090101
  2. FENTANYL [Concomitant]

REACTIONS (3)
  - UNEVALUABLE EVENT [None]
  - TOOTH DISORDER [None]
  - ADVERSE REACTION [None]
